FAERS Safety Report 11952453 (Version 4)
Quarter: 2016Q1

REPORT INFORMATION
  Report Type: Spontaneous
  Country: BR (occurrence: BR)
  Receive Date: 20160125
  Receipt Date: 20160308
  Transmission Date: 20160526
  Serious: Yes (Other)
  Sender: FDA-Public Use
  Company Number: PHHY2016BR009182

PATIENT
  Age: 91 Year
  Sex: Female

DRUGS (1)
  1. FORASEQ [Suspect]
     Active Substance: BUDESONIDE\FORMOTEROL FUMARATE
     Indication: ASTHMA
     Dosage: UNK UNK, BID (IN THE MORNING AND AT NIGHT)
     Route: 055

REACTIONS (3)
  - Cerebrovascular accident [Recovering/Resolving]
  - Wrong technique in product usage process [Unknown]
  - Mobility decreased [Unknown]

NARRATIVE: CASE EVENT DATE: 201407
